FAERS Safety Report 19920110 (Version 5)
Quarter: 2022Q1

REPORT INFORMATION
  Report Type: Spontaneous
  Country: CA (occurrence: CA)
  Receive Date: 20211005
  Receipt Date: 20220223
  Transmission Date: 20220423
  Serious: Yes (Other)
  Sender: FDA-Public Use
  Company Number: CA-PFIZER INC-2020361028

PATIENT
  Age: 24 Year
  Sex: Female
  Weight: 67 kg

DRUGS (9)
  1. RUXIENCE [Suspect]
     Active Substance: RITUXIMAB-PVVR
     Indication: Granulomatosis with polyangiitis
     Dosage: 1000 MG, DAY 0 AND DAY 15 (SECOND DOSE 07OCT2020)
     Route: 042
     Dates: start: 20200923
  2. RUXIENCE [Suspect]
     Active Substance: RITUXIMAB-PVVR
     Dosage: 1000 MG, DAY 1 AND DAY 15
     Route: 042
     Dates: start: 20200923, end: 20201007
  3. RUXIENCE [Suspect]
     Active Substance: RITUXIMAB-PVVR
     Dosage: 1000 MG, DAY 0 AND DAY 15 (SECOND DOSE 07OCT2020)
     Route: 042
     Dates: start: 20201007
  4. RUXIENCE [Suspect]
     Active Substance: RITUXIMAB-PVVR
     Dosage: 500MG, EVERY 6MONTH (FOR ONE DOSE)
     Route: 042
     Dates: start: 20210520, end: 20210520
  5. RUXIENCE [Suspect]
     Active Substance: RITUXIMAB-PVVR
     Dosage: 500MG, ONE DOSE
     Route: 042
     Dates: start: 20220210
  6. VITAMINS NOS [Concomitant]
     Active Substance: VITAMINS
     Dosage: UNK
  7. SEPTRA [Concomitant]
     Active Substance: SULFAMETHOXAZOLE\TRIMETHOPRIM
     Dosage: UNK
  8. SEPTRA [Concomitant]
     Active Substance: SULFAMETHOXAZOLE\TRIMETHOPRIM
     Dosage: 1 DF, 3 TIMES A WEEK (DOSAGE NOT AVAILABLE)
     Route: 065
  9. SEPTRA [Concomitant]
     Active Substance: SULFAMETHOXAZOLE\TRIMETHOPRIM
     Dosage: 1 DF, 800/160 MG ONE TABLET MONDAY, WEDNESDAY AND FRIDAY.
     Route: 065

REACTIONS (7)
  - Cholesteatoma [Unknown]
  - Excessive granulation tissue [Unknown]
  - Pyrexia [Unknown]
  - SARS-CoV-2 test positive [Unknown]
  - Off label use [Unknown]
  - Intentional product use issue [Unknown]
  - Product use issue [Unknown]

NARRATIVE: CASE EVENT DATE: 20201001
